FAERS Safety Report 8959051 (Version 5)
Quarter: 2013Q1

REPORT INFORMATION
  Report Type: Spontaneous
  Country: US (occurrence: US)
  Receive Date: 20121212
  Receipt Date: 20130315
  Transmission Date: 20140127
  Serious: Yes (Hospitalization)
  Sender: FDA-Public Use
  Company Number: US-BAYER-2012-127622

PATIENT
  Age: 41 Year
  Sex: Female
  Weight: 91 kg

DRUGS (16)
  1. YAZ [Suspect]
     Indication: ACNE
     Dosage: UNK
     Dates: start: 20101001, end: 20111201
  2. LISINOPRIL [Concomitant]
     Dosage: UNK
     Dates: start: 20100827
  3. AMLODIPIN [Concomitant]
     Dosage: UNK
     Dates: start: 20100827
  4. PRAVASTATIN [Concomitant]
     Dosage: UNK
     Dates: start: 20100827
  5. INSULINS AND ANALOGUES [Concomitant]
     Dosage: UNK
     Dates: start: 20100827
  6. ZANAFLEX [Concomitant]
     Dosage: UNK
     Dates: start: 20100827
  7. BUSPAR [Concomitant]
     Dosage: UNK
     Dates: start: 20100827
  8. CELEXA [Concomitant]
     Dosage: UNK
     Dates: start: 20100827
  9. ELAVIL [Concomitant]
     Dosage: UNK
     Dates: start: 20100827
  10. LAMOTRIGINE [Concomitant]
     Dosage: UNK
     Dates: start: 20100827
  11. SUBOXONE [Concomitant]
     Dosage: UNK
     Dates: start: 20100827
  12. KLONOPIN [Concomitant]
  13. HYDROCHLOROTHIAZIDE [Concomitant]
  14. CRESTOR [Concomitant]
     Indication: HYPERCHOLESTEROLAEMIA
  15. PERCOCET [Concomitant]
  16. NARCAN [Concomitant]

REACTIONS (10)
  - Optic ischaemic neuropathy [None]
  - Injury [None]
  - Pain [None]
  - General physical health deterioration [None]
  - Emotional distress [None]
  - Pain [None]
  - Anhedonia [None]
  - Depression [None]
  - Mental disorder [None]
  - Anxiety [None]
